FAERS Safety Report 4712777-6 (Version None)
Quarter: 2005Q3

REPORT INFORMATION
  Report Type: 
  Country: None (occurrence: None)
  Receive Date: 20050701
  Receipt Date: 20041210
  Transmission Date: 20060218
  Serious: Yes (Death, Other)
  Sender: FDA-Public Use
  Company Number: 2004111181

PATIENT
  Age: 23 Year
  Sex: Female

DRUGS (1)
  1. ZOLOFT [Suspect]
     Indication: EMOTIONAL DISORDER
     Route: 065
     Dates: start: 20030101, end: 20030521

REACTIONS (3)
  - DEPRESSION [None]
  - OVERDOSE [None]
  - SUICIDE ATTEMPT [None]
